FAERS Safety Report 5699430-X (Version None)
Quarter: 2008Q2

REPORT INFORMATION
  Report Type: 
  Country: None (occurrence: None)
  Receive Date: 20080407
  Receipt Date: 20080326
  Transmission Date: 20081010
  Serious: Yes (Hospitalization, Other)
  Sender: FDA-Public Use
  Company Number: FABR-1000162

PATIENT
  Sex: Male

DRUGS (1)
  1. FABRAZYME [Suspect]
     Indication: FABRY'S DISEASE
     Dosage: 43 MG, Q2W, INTRAVENOUS
     Route: 042
     Dates: start: 20071001

REACTIONS (3)
  - CYTOMEGALOVIRUS INFECTION [None]
  - RENAL FAILURE [None]
  - RENAL TRANSPLANT [None]
